FAERS Safety Report 5160124-0 (Version None)
Quarter: 2006Q4

REPORT INFORMATION
  Report Type: 
  Country: None (occurrence: None)
  Receive Date: 20061129
  Receipt Date: 20061124
  Transmission Date: 20070319
  Serious: Yes (Life-Threatening)
  Sender: FDA-Public Use
  Company Number: 2006AP05569

PATIENT
  Age: 77 Year
  Sex: Male

DRUGS (7)
  1. SEROQUEL [Suspect]
     Route: 048
     Dates: start: 20060401, end: 20060801
  2. SEROQUEL [Suspect]
     Route: 048
     Dates: start: 20061001, end: 20061101
  3. GASTER D [Concomitant]
     Route: 048
     Dates: end: 20060901
  4. MYSLEE [Concomitant]
  5. GASCON [Concomitant]
     Route: 048
     Dates: end: 20060901
  6. ROHYPNOL [Concomitant]
  7. URIEF [Concomitant]

REACTIONS (1)
  - GRANULOCYTE COUNT DECREASED [None]
